FAERS Safety Report 8502483-4 (Version None)
Quarter: 2012Q3

REPORT INFORMATION
  Report Type: 
  Country: None (occurrence: None)
  Receive Date: 20120711
  Receipt Date: 20120702
  Transmission Date: 20120928
  Serious: Yes (Life-Threatening, Other)
  Sender: FDA-Public Use
  Company Number: JP-VERTEX PHARMACEUTICALS INC.-AE-2012-008852

PATIENT
  Age: 68 Year
  Sex: Male

DRUGS (15)
  1. PEG-INTRON [Concomitant]
     Indication: HEPATITIS C
     Route: 058
     Dates: start: 20120316, end: 20120322
  2. PEG-INTRON [Concomitant]
     Route: 058
     Dates: start: 20120323, end: 20120403
  3. INCIVEK [Suspect]
     Route: 048
     Dates: start: 20120530, end: 20120604
  4. PEG-INTRON [Concomitant]
     Route: 058
     Dates: start: 20120418, end: 20120424
  5. PEG-INTRON [Concomitant]
     Route: 058
     Dates: start: 20120530, end: 20120530
  6. REBETOL [Concomitant]
     Route: 048
     Dates: start: 20120523, end: 20120529
  7. REBETOL [Concomitant]
     Indication: HEPATITIS C
     Route: 048
     Dates: start: 20120316, end: 20120424
  8. PEG-INTRON [Concomitant]
     Route: 058
     Dates: start: 20120502, end: 20120529
  9. REBETOL [Concomitant]
     Route: 048
     Dates: start: 20120425
  10. INCIVEK [Suspect]
     Indication: HEPATITIS C
     Route: 048
     Dates: start: 20120316, end: 20120529
  11. PEG-INTRON [Concomitant]
     Route: 058
     Dates: start: 20120425, end: 20120501
  12. REBETOL [Concomitant]
     Route: 048
     Dates: start: 20120316, end: 20120522
  13. REBETOL [Concomitant]
     Route: 048
     Dates: start: 20120530, end: 20120603
  14. PEG-INTRON [Concomitant]
     Route: 058
     Dates: start: 20120404, end: 20120417
  15. NEO-MINOPHAGEN C [Concomitant]
     Dates: end: 20120425

REACTIONS (2)
  - ANAEMIA [None]
  - ACUTE MYOCARDIAL INFARCTION [None]
